FAERS Safety Report 17044373 (Version 1)
Quarter: 2019Q4

REPORT INFORMATION
  Report Type: Report from Study
  Country: US (occurrence: US)
  Receive Date: 20191118
  Receipt Date: 20191118
  Transmission Date: 20200122
  Serious: No
  Sender: FDA-Public Use
  Company Number: US-IPSEN BIOPHARMACEUTICALS, INC.-2019-21427

PATIENT
  Age: 58 Year

DRUGS (1)
  1. DYSPORT [Suspect]
     Active Substance: ABOBOTULINUMTOXINA
     Indication: MUSCLE SPASTICITY
     Dosage: 500 (UNIT NOT SPECIFIED: FINGER FLEXORS: 140; WRIST FLEXORS: 120; ELBOW FLEXORS: 80; SHOULDER MUSCLE
     Route: 030

REACTIONS (1)
  - Muscle spasticity [Unknown]
